FAERS Safety Report 13757261 (Version 1)
Quarter: 2017Q3

REPORT INFORMATION
  Report Type: Report from Study
  Country: CO (occurrence: CO)
  Receive Date: 20170716
  Receipt Date: 20170716
  Transmission Date: 20171127
  Serious: Yes (Hospitalization, Other)
  Sender: FDA-Public Use
  Company Number: CO-AMGEN-COLSL2017105879

PATIENT
  Age: 79 Year
  Sex: Female

DRUGS (1)
  1. ARANESP [Suspect]
     Active Substance: DARBEPOETIN ALFA
     Indication: NEPHROGENIC ANAEMIA
     Dosage: 50 MUG, QWK
     Route: 058
     Dates: start: 20170427

REACTIONS (2)
  - Pancreatitis [Recovered/Resolved]
  - Angina unstable [Not Recovered/Not Resolved]

NARRATIVE: CASE EVENT DATE: 20170616
